FAERS Safety Report 17199840 (Version 1)
Quarter: 2019Q4

REPORT INFORMATION
  Report Type: Spontaneous
  Country: DE (occurrence: DE)
  Receive Date: 20191226
  Receipt Date: 20191226
  Transmission Date: 20200122
  Serious: Yes (Hospitalization)
  Sender: FDA-Public Use
  Company Number: DE-ROCHE-2507345

PATIENT
  Sex: Female

DRUGS (4)
  1. OSPOLOT [Concomitant]
     Active Substance: SULTHIAME
  2. FLUTIDE [FLUTICASONE PROPIONATE] [Concomitant]
  3. SOMATROPIN. [Suspect]
     Active Substance: SOMATROPIN
     Indication: SMALL FOR DATES BABY
     Route: 058
     Dates: start: 20070502, end: 20150706
  4. SOMATROPIN. [Suspect]
     Active Substance: SOMATROPIN
     Indication: OFF LABEL USE

REACTIONS (6)
  - Abdominal pain upper [Recovered/Resolved]
  - Fructose intolerance [Not Recovered/Not Resolved]
  - Intentional product use issue [Unknown]
  - Constipation [Recovered/Resolved]
  - Lactose intolerance [Not Recovered/Not Resolved]
  - Off label use [Unknown]

NARRATIVE: CASE EVENT DATE: 20070804
